FAERS Safety Report 5151251-2 (Version None)
Quarter: 2006Q4

REPORT INFORMATION
  Report Type: 
  Country: None (occurrence: None)
  Receive Date: 20061110
  Receipt Date: 20061110
  Transmission Date: 20070319
  Serious: Yes (Hospitalization)
  Sender: FDA-Public Use
  Company Number: None

PATIENT
  Age: 72 Year
  Weight: 81.1 kg

DRUGS (1)
  1. GLYBURIDE [Suspect]
     Dosage: 5MG QD

REACTIONS (7)
  - ASTHENIA [None]
  - FATIGUE [None]
  - HYPOGLYCAEMIA [None]
  - PLEURAL EFFUSION [None]
  - PNEUMONIA [None]
  - RENAL FAILURE ACUTE [None]
  - TREATMENT NONCOMPLIANCE [None]
